FAERS Safety Report 25659977 (Version 1)
Quarter: 2025Q3

REPORT INFORMATION
  Report Type: Spontaneous
  Country: JP (occurrence: JP)
  Receive Date: 20250808
  Receipt Date: 20250808
  Transmission Date: 20251021
  Serious: Yes (Hospitalization)
  Sender: MERCK SHARP & DOHME LLC
  Company Number: JP-MSD-M2023-32310

PATIENT
  Age: 7 Decade
  Sex: Female

DRUGS (3)
  1. KEYTRUDA [Suspect]
     Active Substance: PEMBROLIZUMAB
     Indication: Triple negative breast cancer
     Dosage: DOSE DESCRIPTION : 200 MILLIGRAM, Q3W?DAILY DOSE : 9.4 MILLIGRAM?REGIMEN DOSE : 600  MILLIGRAM
     Route: 041
     Dates: start: 20221212, end: 20230130
  2. CARBOPLATIN [Concomitant]
     Active Substance: CARBOPLATIN
     Dosage: DOSE DESCRIPTION : 150 MILLIGRAM, QW?DAILY DOSE : 21.45 MILLIGRAM?REGIMEN DOSE : 1500  MILLIGRAM
     Route: 041
     Dates: start: 20221212, end: 20230213
  3. PACLITAXEL [Concomitant]
     Active Substance: PACLITAXEL
     Dosage: DOSE DESCRIPTION : 80 MILLIGRAM/SQ. METER, QW?DAILY DOSE : 11.44 MILLIGRAM/SQ. METER?REGIMEN DOSE...
     Route: 041
     Dates: start: 20221212, end: 20230213

REACTIONS (2)
  - Immune-mediated adrenal insufficiency [Recovering/Resolving]
  - Immune-mediated lung disease [Recovered/Resolved]

NARRATIVE: CASE EVENT DATE: 20230208
